FAERS Safety Report 6685965-X (Version None)
Quarter: 2010Q2

REPORT INFORMATION
  Report Type: 
  Country: None (occurrence: None)
  Receive Date: 20100419
  Receipt Date: 20100407
  Transmission Date: 20101027
  Serious: Yes (Other)
  Sender: FDA-Public Use
  Company Number: PHHY2010BR03217

PATIENT
  Sex: Male
  Weight: 90 kg

DRUGS (6)
  1. LEPONEX [Suspect]
     Indication: DEPRESSION
     Dosage: 25 MG, UNK
     Dates: start: 20060101
  2. LEPONEX [Suspect]
     Dosage: 100MG: 2 TABLETS IN THE MORNING AND 4 TABLETS AT NIGHT
     Route: 048
  3. FLUOXETINE [Concomitant]
     Indication: SCHIZOPHRENIA
     Dosage: 1 DF, QD
     Route: 048
     Dates: start: 20100114
  4. CARBOLITHIUM [Concomitant]
     Indication: SCHIZOPHRENIA
     Dosage: 1 DF, TID
     Route: 048
     Dates: start: 20080101
  5. DIAZEPAM [Concomitant]
     Indication: SCHIZOPHRENIA
     Dosage: 1 DF, QD (1 TABLET IN THE MORNING)
     Route: 048
     Dates: start: 20060101
  6. BIPERIDEN HYDROCHLORIDE [Concomitant]
     Dosage: 1 TABLET IN THE MORNING
     Route: 048
     Dates: start: 20060101

REACTIONS (6)
  - CENTRAL OBESITY [None]
  - DEPRESSION [None]
  - INCREASED APPETITE [None]
  - SALIVARY HYPERSECRETION [None]
  - SCHIZOPHRENIA [None]
  - WEIGHT INCREASED [None]
